FAERS Safety Report 6039061-5 (Version None)
Quarter: 2009Q1

REPORT INFORMATION
  Report Type: 
  Country: None (occurrence: None)
  Receive Date: 20090115
  Receipt Date: 20090107
  Transmission Date: 20090719
  Serious: Yes (Other)
  Sender: FDA-Public Use
  Company Number: US-ELI_LILLY_AND_COMPANY-US200901000952

PATIENT
  Sex: Male

DRUGS (3)
  1. HUMALOG MIX 75/25 [Suspect]
     Indication: TYPE 2 DIABETES MELLITUS
     Dosage: UNK, UNK
     Dates: start: 20060101
  2. AVANDIA [Concomitant]
  3. LIPITOR [Concomitant]

REACTIONS (5)
  - CATARACT [None]
  - COLONOSCOPY [None]
  - HAEMORRHAGE [None]
  - OESOPHAGEAL DISORDER [None]
  - VISUAL ACUITY REDUCED [None]
